FAERS Safety Report 7338871-1 (Version None)
Quarter: 2011Q1

REPORT INFORMATION
  Report Type: 
  Country: None (occurrence: None)
  Receive Date: 20110308
  Receipt Date: 20110302
  Transmission Date: 20110831
  Serious: Yes (Other)
  Sender: FDA-Public Use
  Company Number: FR-ROCHE-763294

PATIENT
  Sex: Female

DRUGS (1)
  1. BONIVA [Suspect]
     Dosage: DOSE AND FREQUENCY: UNSPECIFIED.
     Route: 065

REACTIONS (1)
  - AORTIC VALVE DISEASE [None]
